FAERS Safety Report 22842110 (Version 6)
Quarter: 2023Q4

REPORT INFORMATION
  Report Type: Spontaneous
  Country: DE (occurrence: DE)
  Receive Date: 20230821
  Receipt Date: 20231108
  Transmission Date: 20240110
  Serious: Yes (Life-Threatening, Hospitalization)
  Sender: FDA-Public Use
  Company Number: DE-BEH-2023162256

PATIENT
  Age: 50 Year
  Sex: Male

DRUGS (2)
  1. PRIVIGEN [Suspect]
     Active Substance: HUMAN IMMUNOGLOBULIN G
     Indication: Humoral immune defect
     Dosage: 20 GRAM, SINGLE
     Route: 042
     Dates: start: 20230809
  2. PRIVIGEN [Suspect]
     Active Substance: HUMAN IMMUNOGLOBULIN G
     Indication: Immunoglobulins decreased

REACTIONS (14)
  - Dyspnoea [Recovering/Resolving]
  - Chills [Not Recovered/Not Resolved]
  - Pyrexia [Unknown]
  - Hypertension [Unknown]
  - Tachyarrhythmia [Unknown]
  - Transfusion-related acute lung injury [Recovered/Resolved]
  - Anaphylactic transfusion reaction [Recovered/Resolved]
  - Blood lactate dehydrogenase increased [Unknown]
  - Pulmonary hypertension [Not Recovered/Not Resolved]
  - Hyperpyrexia [Not Recovered/Not Resolved]
  - Acute respiratory failure [Recovered/Resolved]
  - Tachypnoea [Recovered/Resolved]
  - Tachycardia [Recovered/Resolved]
  - Arrhythmia [Recovered/Resolved]

NARRATIVE: CASE EVENT DATE: 20230809
